FAERS Safety Report 20889993 (Version 3)
Quarter: 2022Q2

REPORT INFORMATION
  Report Type: Report from Study
  Country: US (occurrence: US)
  Receive Date: 20220530
  Receipt Date: 20220622
  Transmission Date: 20220721
  Serious: No
  Sender: FDA-Public Use
  Company Number: US-Ipsen Biopharmaceuticals, Inc.-2022-15082

PATIENT
  Age: 12 Year
  Sex: Male
  Weight: 41 kg

DRUGS (3)
  1. INCRELEX [Suspect]
     Active Substance: MECASERMIN
     Indication: Hypopituitarism
     Route: 058
     Dates: start: 20191115
  2. INCRELEX [Suspect]
     Active Substance: MECASERMIN
     Indication: Off label use
  3. INCRELEX [Suspect]
     Active Substance: MECASERMIN
     Indication: Primary insulin like growth factor-1 deficiency

REACTIONS (4)
  - Pain [Unknown]
  - Scoliosis [Unknown]
  - Growth accelerated [Unknown]
  - Off label use [Unknown]

NARRATIVE: CASE EVENT DATE: 20200113
